FAERS Safety Report 10328123 (Version 1)
Quarter: 2014Q3

REPORT INFORMATION
  Report Type: Spontaneous
  Country: CN (occurrence: CN)
  Receive Date: 20140721
  Receipt Date: 20140721
  Transmission Date: 20150326
  Serious: Yes (Hospitalization)
  Sender: FDA-Public Use
  Company Number: PHHY2014CN088267

PATIENT
  Age: 74 Year
  Sex: Female

DRUGS (2)
  1. TEGRETOL [Suspect]
     Active Substance: CARBAMAZEPINE
     Indication: POST PROCEDURAL COMPLICATION
  2. TEGRETOL [Suspect]
     Active Substance: CARBAMAZEPINE
     Indication: MENINGIOMA
     Dosage: 200 MG, DAILY
     Route: 048
     Dates: start: 20131231, end: 20140127

REACTIONS (2)
  - Liver function test abnormal [Not Recovered/Not Resolved]
  - Erythema multiforme [Recovering/Resolving]

NARRATIVE: CASE EVENT DATE: 20140127
